FAERS Safety Report 7929201-2 (Version None)
Quarter: 2011Q4

REPORT INFORMATION
  Report Type: 
  Country: None (occurrence: None)
  Receive Date: 20111120
  Receipt Date: 20111107
  Transmission Date: 20120403
  Serious: Yes (Death, Other)
  Sender: FDA-Public Use
  Company Number: IL-BRISTOL-MYERS SQUIBB COMPANY-16239196

PATIENT
  Age: 37 Year
  Sex: Female

DRUGS (9)
  1. CARBOPLATIN [Suspect]
     Indication: BREAST CANCER
  2. DOXORUBICIN HCL [Suspect]
     Indication: BREAST CANCER
  3. TRASTUZUMAB [Suspect]
  4. PACLITAXEL [Suspect]
     Indication: BREAST CANCER
  5. GEMCITABINE [Suspect]
     Indication: BREAST CANCER
  6. CYCLOPHOSPHAMIDE [Suspect]
     Indication: BREAST CANCER
  7. FENTANYL-100 [Suspect]
  8. ALDACTONE [Suspect]
  9. FUROSEMIDE [Suspect]

REACTIONS (2)
  - HEPATIC FAILURE [None]
  - CARDIAC CIRRHOSIS [None]
